FAERS Safety Report 24125447 (Version 1)
Quarter: 2024Q3

REPORT INFORMATION
  Report Type: Spontaneous
  Country: CN (occurrence: CN)
  Receive Date: 20240723
  Receipt Date: 20240723
  Transmission Date: 20241016
  Serious: Yes (Death)
  Sender: STRIDES
  Company Number: CN-STRIDES ARCOLAB LIMITED-2024SP008982

PATIENT
  Age: 35 Year
  Sex: Female

DRUGS (5)
  1. PREDNISOLONE [Suspect]
     Active Substance: PREDNISOLONE
     Indication: Langerhans^ cell histiocytosis
     Dosage: 40 MICROGRAM/SQ. METER, QD, IN THREE DIVIDED DOSES
     Route: 048
  2. PREDNISOLONE [Suspect]
     Active Substance: PREDNISOLONE
     Dosage: UNK, TAPERED OVER THE FOLLOWING 2 WEEKS
     Route: 048
  3. VINDESINE [Suspect]
     Active Substance: VINDESINE
     Indication: Langerhans^ cell histiocytosis
     Dosage: 6 MILLIGRAM/SQ. METER, ONCE A WEEK, BOLUS FOR 6 WEEKS
     Route: 042
  4. LEVOTHYROXINE [Suspect]
     Active Substance: LEVOTHYROXINE\LEVOTHYROXINE SODIUM
     Indication: Langerhans^ cell histiocytosis
     Dosage: 25 MICROGRAM, QD
     Route: 048
  5. ESCITALOPRAM [Suspect]
     Active Substance: ESCITALOPRAM OXALATE
     Indication: Langerhans^ cell histiocytosis
     Dosage: 10 MILLIGRAM, QD
     Route: 065

REACTIONS (4)
  - Respiratory failure [Fatal]
  - Pneumonia [Fatal]
  - Therapy non-responder [Fatal]
  - Condition aggravated [Fatal]
